FAERS Safety Report 9517973 (Version 2)
Quarter: 2013Q4

REPORT INFORMATION
  Report Type: Spontaneous
  Country: US (occurrence: US)
  Receive Date: 20130912
  Receipt Date: 20131213
  Transmission Date: 20140711
  Serious: Yes (Other)
  Sender: FDA-Public Use
  Company Number: US-PFIZER INC-2013261627

PATIENT
  Age: 61 Year
  Sex: Male

DRUGS (4)
  1. LIPITOR [Suspect]
     Indication: BLOOD CHOLESTEROL INCREASED
     Dosage: 10 MG, DAILY
     Route: 048
  2. NEURONTIN [Suspect]
     Dosage: UNK
  3. LYRICA [Suspect]
     Dosage: UNK
  4. PERCOCET [Concomitant]
     Dosage: UNK, 1X/DAY

REACTIONS (5)
  - Hearing impaired [Unknown]
  - Musculoskeletal stiffness [Unknown]
  - Pain [Unknown]
  - Pain in extremity [Unknown]
  - Disturbance in attention [Unknown]
